FAERS Safety Report 15966756 (Version 2)
Quarter: 2019Q2

REPORT INFORMATION
  Report Type: Report from Study
  Country: None (occurrence: US)
  Receive Date: 20190215
  Receipt Date: 20190418
  Transmission Date: 20190711
  Serious: Yes (Hospitalization, Other)
  Sender: FDA-Public Use
  Company Number: US-ABBVIE-18K-163-2601462-00

PATIENT
  Age: 67 Year
  Sex: Female

DRUGS (1)
  1. HUMIRA [Suspect]
     Active Substance: ADALIMUMAB
     Indication: RHEUMATOID ARTHRITIS
     Route: 058
     Dates: start: 2007

REACTIONS (6)
  - Malaise [Unknown]
  - Renal impairment [Unknown]
  - Sinusitis [Unknown]
  - Malaise [Recovered/Resolved]
  - Osteoarthritis [Recovered/Resolved]
  - Nephropathy toxic [Unknown]

NARRATIVE: CASE EVENT DATE: 2018
